FAERS Safety Report 6668821-2 (Version None)
Quarter: 2010Q2

REPORT INFORMATION
  Report Type: 
  Country: None (occurrence: None)
  Receive Date: 20100402
  Receipt Date: 20100324
  Transmission Date: 20101027
  Serious: Yes (Life-Threatening)
  Sender: FDA-Public Use
  Company Number: IDA-00343

PATIENT
  Age: 34 Year
  Sex: Female

DRUGS (2)
  1. PROPRANOLOL [Suspect]
     Dosage: DAILY ORAL TABLET
  2. CLONAZEPAM [Suspect]
     Dosage: DAILY ORAL TABLET
     Route: 048

REACTIONS (6)
  - BRADYCARDIA [None]
  - BRUGADA SYNDROME [None]
  - DRUG TOXICITY [None]
  - HYPOTENSION [None]
  - HYPOVENTILATION [None]
  - UNRESPONSIVE TO STIMULI [None]
